FAERS Safety Report 6849068-3 (Version None)
Quarter: 2010Q3

REPORT INFORMATION
  Report Type: 
  Country: None (occurrence: None)
  Receive Date: 20100716
  Receipt Date: 20070926
  Transmission Date: 20110219
  Serious: No
  Sender: FDA-Public Use
  Company Number: US-PFIZER INC-2007081995

PATIENT
  Sex: Female
  Weight: 48.2 kg

DRUGS (9)
  1. CHANTIX [Suspect]
     Indication: SMOKING CESSATION THERAPY
     Dates: start: 20070901
  2. ALBUTEROL [Concomitant]
  3. QVAR 40 [Concomitant]
  4. TRAZODONE HYDROCHLORIDE [Concomitant]
  5. METHADONE HCL [Concomitant]
  6. ZOLOFT [Concomitant]
  7. ACETYLSALICYLIC ACID [Concomitant]
  8. OXYGEN [Concomitant]
  9. GENERAL NUTRIENTS [Concomitant]

REACTIONS (6)
  - FEELING ABNORMAL [None]
  - FORMICATION [None]
  - LIMB DISCOMFORT [None]
  - MUSCULOSKELETAL DISCOMFORT [None]
  - NAUSEA [None]
  - WITHDRAWAL SYNDROME [None]
